FAERS Safety Report 5205705-0 (Version None)
Quarter: 2007Q1

REPORT INFORMATION
  Report Type: 
  Country: None (occurrence: None)
  Receive Date: 20070105
  Receipt Date: 20070105
  Transmission Date: 20070707
  Serious: Yes (Hospitalization)
  Sender: FDA-Public Use
  Company Number: None

PATIENT
  Age: 78 Year
  Weight: 90.6 kg

DRUGS (2)
  1. COLCHICINE [Suspect]
     Indication: GOUT
     Dosage: 0.6MG BID
  2. PERCOCET [Suspect]
     Indication: GOUT
     Dosage: 1 TABLET BID

REACTIONS (6)
  - AGITATION [None]
  - DEHYDRATION [None]
  - HYPERTENSION [None]
  - MENTAL STATUS CHANGES [None]
  - OPIATES POSITIVE [None]
  - RENAL FAILURE ACUTE [None]
